FAERS Safety Report 16077401 (Version 1)
Quarter: 2019Q1

REPORT INFORMATION
  Report Type: Spontaneous
  Country: US (occurrence: US)
  Receive Date: 20190315
  Receipt Date: 20190315
  Transmission Date: 20190418
  Serious: Yes (Hospitalization, Other)
  Sender: FDA-Public Use
  Company Number: US-PRAGMA PHARMACEUTICALS, LLC-2019PRG00164

PATIENT
  Age: 42 Year
  Sex: Female
  Weight: 86.17 kg

DRUGS (7)
  1. BUSPIRONE [Concomitant]
     Active Substance: BUSPIRONE HYDROCHLORIDE
     Indication: ANXIETY
     Dosage: 15 MG, 3X/DAY
     Route: 048
     Dates: start: 201704
  2. KEFLEX [Suspect]
     Active Substance: CEPHALEXIN
     Indication: BACTERIAL INFECTION
     Dosage: 1 CAPSULES, 2X/DAY
     Route: 048
     Dates: start: 20180613, end: 201806
  3. TYLENOL [Concomitant]
     Active Substance: ACETAMINOPHEN
  4. ALBUTEROL. [Concomitant]
     Active Substance: ALBUTEROL
     Indication: SMOKE SENSITIVITY
     Dosage: UNK, AS NEEDED
     Dates: start: 2015
  5. EFFEXOR XR [Suspect]
     Active Substance: VENLAFAXINE HYDROCHLORIDE
     Indication: DEPRESSION
     Dosage: 3 TABLETS, 1X/DAY
     Route: 048
     Dates: start: 201704
  6. TRAZODONE [Concomitant]
     Active Substance: TRAZODONE HYDROCHLORIDE
     Indication: INSOMNIA
     Dosage: 200 MG, 1X/DAY AT NIGHT
     Route: 048
     Dates: start: 201704
  7. MELOXICAM. [Concomitant]
     Active Substance: MELOXICAM

REACTIONS (10)
  - Imprisonment [Unknown]
  - Hallucination, auditory [Recovered/Resolved]
  - Schizophrenia [Not Recovered/Not Resolved]
  - Paranoia [Recovered/Resolved]
  - Drug interaction [Recovered/Resolved]
  - Depression [Recovering/Resolving]
  - Suicide attempt [Unknown]
  - Crying [Not Recovered/Not Resolved]
  - Memory impairment [Not Recovered/Not Resolved]
  - Overdose [Unknown]

NARRATIVE: CASE EVENT DATE: 201806
